FAERS Safety Report 7184615-6 (Version None)
Quarter: 2010Q4

REPORT INFORMATION
  Report Type: 
  Country: None (occurrence: None)
  Receive Date: 20101222
  Receipt Date: 20101210
  Transmission Date: 20110411
  Serious: Yes (Hospitalization)
  Sender: FDA-Public Use
  Company Number: US-ELI_LILLY_AND_COMPANY-US200608002068

PATIENT
  Sex: Female

DRUGS (8)
  1. HUMULIN N [Suspect]
     Indication: DIABETES MELLITUS
     Dosage: 14 U, EACH MORNING
     Dates: start: 19920701, end: 20030101
  2. HUMULIN N [Suspect]
     Dosage: 14 U, EACH MORNING
     Dates: start: 20030101
  3. HUMULIN N [Suspect]
     Dosage: 14 U, EACH MORNING
     Dates: start: 20030101
  4. HUMULIN N [Suspect]
     Dosage: 7 U, EACH MORNING
  5. HUMULIN N [Suspect]
     Dosage: UNK, OTHER
  6. LISINOPRIL [Concomitant]
     Indication: BLOOD PRESSURE INCREASED
     Dosage: 40 MG, DAILY (1/D)
  7. ASPIRIN [Concomitant]
     Indication: BLOOD PRESSURE INCREASED
     Dosage: 81 MG, DAILY (1/D)
  8. TOPROL-XL [Concomitant]
     Indication: BLOOD PRESSURE INCREASED
     Dosage: 25 MG, OTHER

REACTIONS (14)
  - ANXIETY [None]
  - BLOOD GLUCOSE DECREASED [None]
  - BLOOD GLUCOSE INCREASED [None]
  - BLOOD PRESSURE INCREASED [None]
  - CATARACT [None]
  - CONVULSION [None]
  - CYSTOCELE [None]
  - DECREASED APPETITE [None]
  - DISCOMFORT [None]
  - INSOMNIA [None]
  - PAIN [None]
  - PAROSMIA [None]
  - TREMOR [None]
  - URINARY TRACT INFECTION [None]
